FAERS Safety Report 20190355 (Version 2)
Quarter: 2022Q1

REPORT INFORMATION
  Report Type: Report from Study
  Country: CA (occurrence: CA)
  Receive Date: 20211215
  Receipt Date: 20220324
  Transmission Date: 20220423
  Serious: Yes (Other)
  Sender: FDA-Public Use
  Company Number: CA-BIOGEN-2021BI01034049

PATIENT
  Age: 46 Year
  Sex: Female

DRUGS (2)
  1. TECFIDERA [Suspect]
     Active Substance: DIMETHYL FUMARATE
     Indication: Multiple sclerosis
     Route: 048
     Dates: start: 20210707
  2. TECFIDERA [Suspect]
     Active Substance: DIMETHYL FUMARATE
     Route: 048
     Dates: start: 20210707

REACTIONS (4)
  - Diabetes mellitus [Not Recovered/Not Resolved]
  - Fatigue [Not Recovered/Not Resolved]
  - Somnolence [Not Recovered/Not Resolved]
  - Constipation [Unknown]

NARRATIVE: CASE EVENT DATE: 20210707
